FAERS Safety Report 14660808 (Version 1)
Quarter: 2018Q1

REPORT INFORMATION
  Report Type: Spontaneous
  Country: US (occurrence: US)
  Receive Date: 20180320
  Receipt Date: 20180320
  Transmission Date: 20180509
  Serious: No
  Sender: FDA-Public Use
  Company Number: US-ALEXION PHARMACEUTICALS INC.-A201802758

PATIENT
  Age: 28 Year
  Sex: Female

DRUGS (2)
  1. NOT AVAILABLE [Concomitant]
     Dosage: NOT AVAILABLE
  2. SOLIRIS [Suspect]
     Active Substance: ECULIZUMAB
     Dosage: 900 MG, Q2W
     Route: 042

REACTIONS (1)
  - Exposure during pregnancy [Not Recovered/Not Resolved]
